FAERS Safety Report 16988683 (Version 1)
Quarter: 2019Q4

REPORT INFORMATION
  Report Type: Spontaneous
  Country: US (occurrence: US)
  Receive Date: 20190919
  Receipt Date: 20190919
  Transmission Date: 20200122
  Serious: Yes (Hospitalization)
  Sender: FDA-Public Use
  Company Number: None

PATIENT
  Age: 65 Year
  Sex: Male

DRUGS (1)
  1. COPAXONE [Suspect]
     Active Substance: GLATIRAMER ACETATE
     Route: 058
     Dates: start: 1997

REACTIONS (4)
  - Panic attack [None]
  - Escherichia urinary tract infection [None]
  - Gait disturbance [None]
  - Head discomfort [None]

NARRATIVE: CASE EVENT DATE: 20190701
